FAERS Safety Report 21131988 (Version 1)
Quarter: 2022Q3

REPORT INFORMATION
  Report Type: Spontaneous
  Country: US (occurrence: US)
  Receive Date: 20220726
  Receipt Date: 20220726
  Transmission Date: 20221026
  Serious: No
  Sender: FDA-Public Use
  Company Number: US-Osmotica_Pharmaceutical_US_LLC-POI0573202100371

PATIENT
  Age: 42 Year
  Sex: Female

DRUGS (1)
  1. DIVIGEL [Suspect]
     Active Substance: ESTRADIOL
     Indication: Menopausal symptoms
     Dosage: UNKNOWN
     Route: 062
     Dates: start: 202105, end: 202109

REACTIONS (1)
  - Application site irritation [Recovering/Resolving]

NARRATIVE: CASE EVENT DATE: 20210501
